FAERS Safety Report 5095683-X (Version None)
Quarter: 2006Q3

REPORT INFORMATION
  Report Type: 
  Country: None (occurrence: None)
  Receive Date: 20060731
  Receipt Date: 20060428
  Transmission Date: 20061208
  Serious: No
  Sender: FDA-Public Use
  Company Number: 2006PV012975

PATIENT
  Age: 49 Year
  Sex: Female
  Weight: 128.8216 kg

DRUGS (3)
  1. BYETTA [Suspect]
     Indication: DIABETES MELLITUS NON-INSULIN-DEPENDENT
     Dosage: 5 MCG; BID; SC
     Route: 058
     Dates: start: 20060416
  2. AVANDIA [Concomitant]
  3. METFORMIN HCL [Concomitant]

REACTIONS (10)
  - BLOOD GLUCOSE DECREASED [None]
  - CHILLS [None]
  - DIZZINESS [None]
  - HOT FLUSH [None]
  - HYPERMETABOLISM [None]
  - INCREASED APPETITE [None]
  - NOCTURIA [None]
  - RENAL COLIC [None]
  - STOMACH DISCOMFORT [None]
  - WEIGHT DECREASED [None]
